FAERS Safety Report 8982678 (Version 1)
Quarter: 2012Q4

REPORT INFORMATION
  Report Type: 
  Country: US (occurrence: US)
  Receive Date: 20121224
  Receipt Date: 20121224
  Transmission Date: 20130627
  Serious: Yes (Other)
  Sender: FDA-Public Use
  Company Number: US-JNJFOC-20121210472

PATIENT

DRUGS (3)
  1. HALDOL [Suspect]
     Indication: SCHIZOPHRENIA
     Route: 030
  2. HALDOL [Suspect]
     Indication: SCHIZOPHRENIFORM DISORDER
     Route: 030
  3. HALDOL [Suspect]
     Indication: SCHIZOAFFECTIVE DISORDER
     Route: 030

REACTIONS (8)
  - Extrapyramidal disorder [Unknown]
  - Sinus tachycardia [Unknown]
  - Electrocardiogram QT interval abnormal [Unknown]
  - Headache [Unknown]
  - Dizziness [Unknown]
  - Somnolence [Unknown]
  - Akathisia [Unknown]
  - Dystonia [Unknown]
